FAERS Safety Report 14627527 (Version 1)
Quarter: 2018Q1

REPORT INFORMATION
  Report Type: Spontaneous
  Country: ZA (occurrence: ZA)
  Receive Date: 20180312
  Receipt Date: 20180312
  Transmission Date: 20180509
  Serious: Yes (Other)
  Sender: FDA-Public Use
  Company Number: ZA-PFIZER INC-2018095025

PATIENT
  Age: 49 Year
  Sex: Male

DRUGS (5)
  1. ASPAVOR [Suspect]
     Active Substance: ATORVASTATIN
     Dosage: 20 MG, UNKNOWN FREQUENCY
  2. PREXUM PLUS /01421201/ [Suspect]
     Active Substance: INDAPAMIDE\PERINDOPRIL ERBUMINE
     Dosage: 4/1.25 MG, UNKNOWN FREQUENCY
     Dates: end: 201801
  3. BETACOR /00008501/ [Suspect]
     Active Substance: BETAMETHASONE
     Dosage: 5 MG, UNKNOWN FREQUENCY
  4. PREXUM PLUS /01421201/ [Suspect]
     Active Substance: INDAPAMIDE\PERINDOPRIL ERBUMINE
     Dosage: 5/1.25 MG, UNKNOWN FREQUENCY
  5. DISPRIN CARDIOCARE [Suspect]
     Active Substance: ASPIRIN
     Dosage: 100 MG, UNKNOWN FREQUENCY

REACTIONS (1)
  - Hernia [Unknown]
